FAERS Safety Report 6556373-7 (Version None)
Quarter: 2010Q1

REPORT INFORMATION
  Report Type: 
  Country: None (occurrence: None)
  Receive Date: 20100128
  Receipt Date: 20100120
  Transmission Date: 20100710
  Serious: Yes (Death)
  Sender: FDA-Public Use
  Company Number: GXKR2010GB01002

PATIENT
  Sex: Male
  Weight: 1.155 kg

DRUGS (2)
  1. METFORMIN (NGX) [Suspect]
     Dosage: 500 MG, BID
     Route: 064
     Dates: start: 20081008, end: 20081024
  2. LABETALOL HCL [Concomitant]
     Dosage: 200 MG, TID
     Route: 064

REACTIONS (3)
  - DRUG EXPOSURE DURING PREGNANCY [None]
  - FOETAL GROWTH RETARDATION [None]
  - INTRA-UTERINE DEATH [None]
